FAERS Safety Report 5890922-7 (Version None)
Quarter: 2008Q3

REPORT INFORMATION
  Report Type: 
  Country: None (occurrence: None)
  Receive Date: 20080922
  Receipt Date: 20080912
  Transmission Date: 20090109
  Serious: Yes (Hospitalization)
  Sender: FDA-Public Use
  Company Number: A0729673A

PATIENT
  Age: 57 Year
  Sex: Female
  Weight: 84.1 kg

DRUGS (4)
  1. AVANDIA [Suspect]
     Route: 048
     Dates: start: 20000101, end: 20070101
  2. GLUCOPHAGE [Concomitant]
     Dates: start: 20000701
  3. METFORMIN HCL [Concomitant]
     Dates: start: 20060601, end: 20070501
  4. BYETTA [Concomitant]

REACTIONS (2)
  - CARDIAC FAILURE CONGESTIVE [None]
  - PERIPHERAL VASCULAR DISORDER [None]
